FAERS Safety Report 8341218-5 (Version None)
Quarter: 2012Q2

REPORT INFORMATION
  Report Type: 
  Country: None (occurrence: None)
  Receive Date: 20120507
  Receipt Date: 20120425
  Transmission Date: 20120825
  Serious: Yes (Other)
  Sender: FDA-Public Use
  Company Number: US-JNJFOC-20120412199

PATIENT
  Age: 64 Year
  Sex: Male
  Weight: 88.45 kg

DRUGS (3)
  1. ANTIBIOTIC [Suspect]
     Indication: INFECTION
     Route: 065
  2. EXTRA STRENGTH TYLENOL [Suspect]
     Route: 048
  3. EXTRA STRENGTH TYLENOL [Suspect]
     Indication: PAIN
     Dosage: ^AS DIRECTED^
     Route: 048
     Dates: start: 20120418, end: 20120401

REACTIONS (4)
  - ORAL MUCOSAL BLISTERING [None]
  - LIP SWELLING [None]
  - RASH MACULAR [None]
  - CHEILITIS [None]
